FAERS Safety Report 23345751 (Version 2)
Quarter: 2024Q1

REPORT INFORMATION
  Report Type: Report from Study
  Country: IL (occurrence: IL)
  Receive Date: 20231228
  Receipt Date: 20240106
  Transmission Date: 20240410
  Serious: Yes (Hospitalization)
  Sender: FDA-Public Use
  Company Number: IL-ABBVIE-5562000

PATIENT
  Age: 73 Year
  Sex: Female

DRUGS (1)
  1. SKYRIZI [Suspect]
     Active Substance: RISANKIZUMAB-RZAA
     Indication: Psoriasis
     Dosage: FORM STRENGTH: 150 MILLIGRAM
     Route: 058
     Dates: start: 20231126

REACTIONS (8)
  - Pneumonia [Unknown]
  - Dyspnoea [Recovered/Resolved]
  - Hepatic function abnormal [Unknown]
  - Rash [Not Recovered/Not Resolved]
  - Blood test abnormal [Unknown]
  - Feeling abnormal [Unknown]
  - Presyncope [Unknown]
  - Hepatic enzyme increased [Unknown]

NARRATIVE: CASE EVENT DATE: 20231201
